FAERS Safety Report 22819497 (Version 4)
Quarter: 2024Q4

REPORT INFORMATION
  Report Type: Spontaneous
  Country: US (occurrence: US)
  Receive Date: 20230814
  Receipt Date: 20241105
  Transmission Date: 20250114
  Serious: Yes (Hospitalization, Other)
  Sender: MYLAN
  Company Number: US-MYLANLABS-2023M1083127

PATIENT
  Age: 49 Year
  Sex: Female
  Weight: 99.79 kg

DRUGS (30)
  1. MEDROXYPROGESTERONE [Suspect]
     Active Substance: MEDROXYPROGESTERONE
     Indication: Product used for unknown indication
     Dosage: UNK
     Route: 065
     Dates: start: 1995, end: 2021
  2. XANAX [Concomitant]
     Active Substance: ALPRAZOLAM
     Dosage: 1 DOSAGE FORM (TAKE I TAB 30 MIN PRIOR TO MRI)
     Route: 048
     Dates: start: 20230405
  3. VALIUM [Concomitant]
     Active Substance: DIAZEPAM
     Dosage: 1 DOSAGE FORM (40 MIN PRIOR TO MRI)
     Route: 048
     Dates: start: 20230322
  4. LACOSAMIDE [Concomitant]
     Active Substance: LACOSAMIDE
     Dosage: 1 DOSAGE FORM, BID (TILL DATE: 30-DEC-2023)
     Route: 048
     Dates: start: 20221024
  5. LACOSAMIDE [Concomitant]
     Active Substance: LACOSAMIDE
     Dosage: 150 MILLIGRAM, BID
     Route: 048
     Dates: start: 20210413
  6. LEVETIRACETAM [Concomitant]
     Active Substance: LEVETIRACETAM
     Dosage: 500 MILLIGRAM, BID
     Route: 048
  7. LEVETIRACETAM [Concomitant]
     Active Substance: LEVETIRACETAM
     Dosage: 1000 MILLIGRAM, BID
     Route: 048
     Dates: start: 20210413
  8. TAMSULOSIN [Concomitant]
     Active Substance: TAMSULOSIN
     Dosage: 0.4 MILLIGRAM, QD
     Route: 048
  9. TAMSULOSIN [Concomitant]
     Active Substance: TAMSULOSIN
     Dosage: 0.8 MILLIGRAM (AT BED)
     Route: 048
     Dates: start: 20210413
  10. LEVOTHYROXINE [Concomitant]
     Active Substance: LEVOTHYROXINE
     Dosage: 75 MICROGRAM, QD
     Route: 048
     Dates: start: 20210414
  11. AMANTADINE [Concomitant]
     Active Substance: AMANTADINE
     Dosage: UNK
     Route: 048
  12. AMANTADINE [Concomitant]
     Active Substance: AMANTADINE
     Dosage: 50 MILLIGRAM, BID
     Route: 048
     Dates: start: 20210414
  13. ZYRTEC [Concomitant]
     Active Substance: CETIRIZINE HYDROCHLORIDE
     Dosage: UNK
     Route: 065
  14. TYLENOL [Concomitant]
     Active Substance: ACETAMINOPHEN
     Dosage: UNK
     Route: 065
  15. QUETIAPINE [Concomitant]
     Active Substance: QUETIAPINE
     Dosage: 25 MILLIGRAM, QD (AT BEDTIME)
     Route: 048
  16. QUETIAPINE [Concomitant]
     Active Substance: QUETIAPINE
     Dosage: 37.5 MILLIGRAM 9( AT BED)
     Route: 048
     Dates: start: 20210413
  17. SIMVASTATIN [Concomitant]
     Active Substance: SIMVASTATIN
     Dosage: 20 MILLIGRAM, QD   AT BEDTIME
     Route: 048
  18. ALPRAZOLAM [Concomitant]
     Active Substance: ALPRAZOLAM
     Dosage: 0.5 MILLIGRAM 40 MINUTES-1 HOUR PRIOR TO THE MR
     Route: 048
  19. HEPARIN [Concomitant]
     Active Substance: HEPARIN SODIUM
     Dosage: 5000 INTERNATIONAL UNIT PER MILLILITRE, TID
     Route: 058
     Dates: start: 20210417, end: 20210616
  20. HYDROCORTISONE [Concomitant]
     Active Substance: HYDROCORTISONE
     Dosage: 20 MILLIGRAM
     Route: 065
     Dates: start: 20210414, end: 20210613
  21. POLYETHYLENE GLYCOL [Concomitant]
     Active Substance: POLYETHYLENE GLYCOL
     Dosage: 17 GRAM, QD
     Route: 048
     Dates: start: 20210414
  22. MELATONIN [Concomitant]
     Active Substance: MELATONIN
     Dosage: 6 MILLIGRAM (AT BED)
     Route: 048
     Dates: start: 20210413
  23. SODIUM CHLORIDE [Concomitant]
     Active Substance: SODIUM CHLORIDE
     Dosage: 45 MILLILITER, TID
     Route: 045
     Dates: start: 20210413
  24. ALBUTEROL [Concomitant]
     Active Substance: ALBUTEROL
     Dosage: 2.5 MILLIGRAM, Q6H
     Route: 055
     Dates: start: 20210413
  25. METOPROLOL [Concomitant]
     Active Substance: METOPROLOL
     Dosage: 37.5 MILLIGRAM, BID
     Route: 048
     Dates: start: 20210413
  26. HYDROCORTISONE [Concomitant]
     Active Substance: HYDROCORTISONE
     Dosage: 10 MILLIGRAM (AT BED)
     Route: 065
     Dates: start: 20210413, end: 20210612
  27. DICLOFENAC SODIUM [Concomitant]
     Active Substance: DICLOFENAC SODIUM
     Dosage: 2 GRAM, QID
     Route: 061
     Dates: start: 20210413
  28. BETHANECHOL [Concomitant]
     Active Substance: BETHANECHOL
     Dosage: 25 MILLIGRAM, TID
     Route: 048
     Dates: start: 20210413
  29. ONDANSETRON [Concomitant]
     Active Substance: ONDANSETRON
     Dosage: 4 MILLIGRAM, Q6H
     Route: 048
     Dates: start: 20210413
  30. SENOKOT [Concomitant]
     Active Substance: SENNOSIDES
     Dosage: 17.2 MILLIGRAM (AT BED)
     Route: 048
     Dates: start: 20210413

REACTIONS (32)
  - Brain neoplasm [Unknown]
  - Meningioma [Unknown]
  - Blindness [Unknown]
  - Headache [Unknown]
  - Neck pain [Unknown]
  - Muscular weakness [Unknown]
  - Rib fracture [Unknown]
  - Nervous system disorder [Not Recovered/Not Resolved]
  - Osteoporosis [Unknown]
  - Osteopenia [Unknown]
  - Psychological trauma [Unknown]
  - Injury [Unknown]
  - General physical health deterioration [Unknown]
  - Anhedonia [Unknown]
  - Anxiety [Unknown]
  - Scar [Unknown]
  - Urinary tract infection [Unknown]
  - Cerebrovascular accident [Unknown]
  - Transient ischaemic attack [Unknown]
  - Hydrocephalus [Unknown]
  - Orthostatic hypotension [Unknown]
  - Seizure [Unknown]
  - Cognitive disorder [Unknown]
  - Mobility decreased [Unknown]
  - Cerebral infarction [Unknown]
  - Asthenia [Unknown]
  - Coordination abnormal [Unknown]
  - Dysphagia [Unknown]
  - Epilepsy [Unknown]
  - Syncope [Unknown]
  - Hypotension [Unknown]
  - Gait disturbance [Unknown]

NARRATIVE: CASE EVENT DATE: 20201201
